FAERS Safety Report 20553577 (Version 1)
Quarter: 2022Q1

REPORT INFORMATION
  Report Type: Other
  Country: US (occurrence: None)
  Receive Date: 20220304
  Receipt Date: 20220304
  Transmission Date: 20220423
  Serious: Yes (Hospitalization, Other)
  Sender: FDA-Public Use
  Company Number: US-ROCHE-3037321

PATIENT
  Sex: Female
  Weight: 61.290 kg

DRUGS (2)
  1. XOLAIR [Suspect]
     Active Substance: OMALIZUMAB
     Indication: Mast cell activation syndrome
     Dosage: 2 SHOTS ;ONGOING: UNKNOWN
     Route: 058
     Dates: start: 20220218
  2. EPIPEN [Concomitant]
     Active Substance: EPINEPHRINE

REACTIONS (16)
  - Anaphylactic reaction [Recovered/Resolved]
  - Seizure [Unknown]
  - Loss of consciousness [Unknown]
  - Deafness [Unknown]
  - Autism spectrum disorder [Unknown]
  - Feeling hot [Unknown]
  - Paraesthesia [Unknown]
  - Fear [Unknown]
  - Anxiety [Unknown]
  - Feeling hot [Unknown]
  - Off label use [Unknown]
  - Tic [Unknown]
  - Hypoaesthesia [Unknown]
  - Hypoaesthesia oral [Unknown]
  - Hypoaesthesia [Unknown]
  - Speech disorder [Unknown]

NARRATIVE: CASE EVENT DATE: 20220218
